FAERS Safety Report 7090606-6 (Version None)
Quarter: 2010Q4

REPORT INFORMATION
  Report Type: 
  Country: None (occurrence: None)
  Receive Date: 20101109
  Receipt Date: 20080917
  Transmission Date: 20110411
  Serious: No
  Sender: FDA-Public Use
  Company Number: US-KINGPHARMUSA00001-K200801100

PATIENT
  Age: 16 Year
  Sex: Female

DRUGS (1)
  1. EPIPEN [Suspect]
     Indication: FOOD ALLERGY
     Dosage: ADMINISTERED TWICE

REACTIONS (1)
  - DRUG INEFFECTIVE [None]
